FAERS Safety Report 9369325 (Version 2)
Quarter: 2013Q3

REPORT INFORMATION
  Report Type: Spontaneous
  Country: US (occurrence: US)
  Receive Date: 20130626
  Receipt Date: 20130816
  Transmission Date: 20140515
  Serious: Yes (Hospitalization)
  Sender: FDA-Public Use
  Company Number: US-MERCK-1306USA010166

PATIENT
  Age: 57 Year
  Sex: Female

DRUGS (10)
  1. VICTRELIS [Suspect]
     Indication: HEPATITIS C
     Dosage: UNK
     Route: 048
     Dates: start: 20111209, end: 20120525
  2. VICTRELIS [Suspect]
     Dosage: UNK
     Route: 048
     Dates: start: 20121109, end: 20130531
  3. REBETOL [Suspect]
     Dosage: UNK
     Route: 048
     Dates: start: 20111111
  4. REBETOL [Suspect]
     Dosage: UNK
     Route: 048
     Dates: start: 20121012
  5. PEGINTRON [Suspect]
     Dosage: UNK
     Dates: start: 20111111
  6. PEGINTRON [Suspect]
     Dosage: UNK
     Dates: start: 20121012
  7. METFORMIN [Concomitant]
  8. FOLIC ACID [Concomitant]
  9. ALBUTEROL [Concomitant]
  10. ADVAIR [Concomitant]

REACTIONS (3)
  - Hepatic cirrhosis [Unknown]
  - Full blood count abnormal [Recovering/Resolving]
  - Hepatitis C [Recovering/Resolving]
